FAERS Safety Report 10203288 (Version 1)
Quarter: 2014Q2

REPORT INFORMATION
  Report Type: Spontaneous
  Country: SK (occurrence: SK)
  Receive Date: 20140529
  Receipt Date: 20140529
  Transmission Date: 20141212
  Serious: Yes (Hospitalization)
  Sender: FDA-Public Use
  Company Number: SK-ROCHE-1409099

PATIENT
  Age: 81 Year
  Sex: Female

DRUGS (4)
  1. LUCENTIS [Suspect]
     Indication: PRODUCT USED FOR UNKNOWN INDICATION
     Route: 050
  2. LUCENTIS [Suspect]
     Dosage: LAST DOSE PRIOR TO SAE: ON 11/FEB/2014
     Route: 050
     Dates: start: 20140211
  3. AVASTIN [Suspect]
     Indication: PRODUCT USED FOR UNKNOWN INDICATION
     Route: 065
  4. AVASTIN [Suspect]
     Dosage: LAST DOSE PRIOR TO SAE: ON 01/APR/2014
     Route: 065
     Dates: start: 20140401

REACTIONS (1)
  - Myocardial infarction [Unknown]
